FAERS Safety Report 4469354-4 (Version None)
Quarter: 2004Q4

REPORT INFORMATION
  Report Type: 
  Country: None (occurrence: None)
  Receive Date: 20041008
  Receipt Date: 20040211
  Transmission Date: 20050328
  Serious: No
  Sender: FDA-Public Use
  Company Number: US-BRISTOL-MYERS SQUIBB COMPANY-12502621

PATIENT
  Sex: Female

DRUGS (4)
  1. AVAPRO [Suspect]
     Route: 048
     Dates: start: 20010101
  2. EVISTA [Concomitant]
     Route: 048
  3. ZOCOR [Concomitant]
     Route: 048
  4. CALTRATE [Concomitant]
     Route: 048

REACTIONS (1)
  - ORAL CANDIDIASIS [None]
